FAERS Safety Report 9066665 (Version 1)
Quarter: 2013Q1

REPORT INFORMATION
  Report Type: Report from Study
  Country: US (occurrence: US)
  Receive Date: 20130131
  Receipt Date: 20130131
  Transmission Date: 20140127
  Serious: No
  Sender: FDA-Public Use
  Company Number: US-ABBOTT-12P-163-1015896-00

PATIENT
  Age: 53 Year
  Sex: Female

DRUGS (11)
  1. HUMIRA [Suspect]
  2. LORAZEPAM [Concomitant]
     Indication: TREMOR
     Dosage: 0.5 MG, 2-3 TIMES A DAY, AS REQUIRED
  3. SYNTHROID [Concomitant]
     Indication: PRODUCT USED FOR UNKNOWN INDICATION
     Dosage: 25 MG DAILY
  4. METAXALONE [Concomitant]
     Indication: MUSCLE SPASMS
     Dosage: 800 MG, 1 TAB 2-3 TIMES A DAY
  5. NEXIUM [Concomitant]
     Indication: GASTROOESOPHAGEAL REFLUX DISEASE
     Dosage: 40 MG DAILY
  6. VENLAFAXINE HYDROCHLORIDE [Concomitant]
     Indication: DEPRESSION
     Dosage: 150 MG, 1 CAPLET, TWICE DAILY
  7. IMITREX [Concomitant]
     Indication: MIGRAINE
     Dosage: 100 MG, 1 TAB AND THEN CAN HAVE ANOTHER ONE 2 HOURS LATER (LIMIT OF 2 A DAY)
  8. OXYCODONE [Concomitant]
     Indication: PAIN
     Dosage: 5/325 MG, AS REQUIRED
  9. PICOLAX LAXATIVE [Concomitant]
     Indication: PRODUCT USED FOR UNKNOWN INDICATION
     Dosage: SUPPOSED TO TAKE TWICE DAILY, BUT DOES NOT ALWAYS DO IT
  10. LIDOCAINE/HYDROCORTISONE CREAM [Concomitant]
     Indication: HAEMORRHOIDS
     Dosage: APPLIES TO HEMORRHOIDS ARE, AS REQUIRED, BUT UP TO TWICE DAILY
  11. ESTORIL [Concomitant]
     Indication: MENOPAUSE

REACTIONS (2)
  - Muscle spasms [Not Recovered/Not Resolved]
  - Muscle spasms [Not Recovered/Not Resolved]
